FAERS Safety Report 24441655 (Version 2)
Quarter: 2024Q4

REPORT INFORMATION
  Report Type: Spontaneous
  Country: MY (occurrence: MY)
  Receive Date: 20241016
  Receipt Date: 20241017
  Transmission Date: 20250114
  Serious: No
  Sender: ROCHE
  Company Number: MY-ROCHE-3508660

PATIENT
  Age: 34 Year
  Sex: Male
  Weight: 45.0 kg

DRUGS (1)
  1. HEMLIBRA [Suspect]
     Active Substance: EMICIZUMAB-KXWH
     Indication: Product used for unknown indication
     Route: 058

REACTIONS (3)
  - Product packaging issue [Unknown]
  - No adverse event [Unknown]
  - Overdose [Unknown]

NARRATIVE: CASE EVENT DATE: 20240207
